FAERS Safety Report 24971906 (Version 1)
Quarter: 2025Q1

REPORT INFORMATION
  Report Type: Report from Study
  Country: CO (occurrence: CO)
  Receive Date: 20250214
  Receipt Date: 20250214
  Transmission Date: 20250408
  Serious: Yes (Hospitalization)
  Sender: EISAI
  Company Number: CO-Eisai-EC-2025-184148

PATIENT
  Age: 73 Year
  Sex: Female
  Weight: 74.00 kg

DRUGS (6)
  1. LENVIMA [Suspect]
     Active Substance: LENVATINIB
     Indication: Hepatic cancer
     Dates: start: 202412, end: 20241214
  2. LENVIMA [Suspect]
     Active Substance: LENVATINIB
     Dates: end: 20241222
  3. LENVIMA [Suspect]
     Active Substance: LENVATINIB
     Dates: start: 20241224, end: 202501
  4. LENVIMA [Suspect]
     Active Substance: LENVATINIB
     Dates: start: 202501, end: 20250202
  5. ENALAPRIL [Concomitant]
     Active Substance: ENALAPRIL
     Indication: Product used for unknown indication
  6. CARVEDILOL [Concomitant]
     Active Substance: CARVEDILOL
     Indication: Product used for unknown indication

REACTIONS (3)
  - Yellow skin [Not Recovered/Not Resolved]
  - Hepatic failure [Unknown]
  - Bacterial infection [Not Recovered/Not Resolved]

NARRATIVE: CASE EVENT DATE: 20250203
